FAERS Safety Report 21334053 (Version 1)
Quarter: 2022Q3

REPORT INFORMATION
  Report Type: Spontaneous
  Country: CN (occurrence: None)
  Receive Date: 20220914
  Receipt Date: 20220914
  Transmission Date: 20221026
  Serious: Yes (Other)
  Sender: FDA-Public Use
  Company Number: CN-ROCHE-3178419

PATIENT
  Age: 58 Year
  Sex: Male
  Weight: 62 kg

DRUGS (2)
  1. ATEZOLIZUMAB [Suspect]
     Active Substance: ATEZOLIZUMAB
     Indication: Hepatic cancer stage III
     Dosage: ON 22/DEC/2020, 26/JAN/2021, 24/FEB/2021, 30/APR/2021 AND 21/JUL/2021, T+A?REGIMEN
     Route: 041
     Dates: start: 20201201
  2. BEVACIZUMAB [Suspect]
     Active Substance: BEVACIZUMAB
     Indication: Hepatic cancer stage III
     Dosage: ON 22/DEC/2020, 26/JAN/2021, 24/FEB/2021, 30/APR/2021 AND 21/JUL/2021, T+A?REGIMEN
     Route: 065
     Dates: start: 20201201

REACTIONS (1)
  - Tumour pseudoprogression [Unknown]
